APPROVED DRUG PRODUCT: MORPHINE SULFATE
Active Ingredient: MORPHINE SULFATE
Strength: 30MG
Dosage Form/Route: TABLET, EXTENDED RELEASE;ORAL
Application: A205386 | Product #002
Applicant: DR REDDYS LABORATORIES SA
Approved: Oct 28, 2016 | RLD: No | RS: No | Type: DISCN